FAERS Safety Report 24365521 (Version 2)
Quarter: 2025Q1

REPORT INFORMATION
  Report Type: Spontaneous
  Country: CA (occurrence: CA)
  Receive Date: 20240926
  Receipt Date: 20250203
  Transmission Date: 20250408
  Serious: Yes (Disabling, Other)
  Sender: ACCORD
  Company Number: CA-Accord-448226

PATIENT
  Age: 6 Year
  Sex: Male

DRUGS (3)
  1. METHOTREXATE [Suspect]
     Active Substance: METHOTREXATE
     Indication: B precursor type acute leukaemia
     Dosage: INDUCTION IT ON DAY 8, 29; CONSOLIDATION-IT ON DAY 1,8, 15
     Route: 037
  2. METHOTREXATE [Suspect]
     Active Substance: METHOTREXATE
     Indication: B precursor type acute leukaemia
     Route: 048
  3. METHOTREXATE [Suspect]
     Active Substance: METHOTREXATE
     Indication: B precursor type acute leukaemia
     Dosage: INTERIM MAINTENANCE (IV MTX 100 MG/M2 (+50/DOSE)

REACTIONS (3)
  - Intellectual disability [Recovering/Resolving]
  - Lennox-Gastaut syndrome [Recovering/Resolving]
  - Confusional state [Recovering/Resolving]
